FAERS Safety Report 23965898 (Version 1)
Quarter: 2024Q2

REPORT INFORMATION
  Report Type: Report from Study
  Country: US (occurrence: US)
  Receive Date: 20240612
  Receipt Date: 20240612
  Transmission Date: 20240716
  Serious: No
  Sender: FDA-Public Use
  Company Number: US-ALXN-A202207293

PATIENT
  Age: 56 Year
  Sex: Female

DRUGS (5)
  1. STRENSIQ [Suspect]
     Active Substance: ASFOTASE ALFA
     Indication: Hypophosphatasia
     Dosage: 94 MG, TIW
     Route: 058
     Dates: start: 20220618
  2. STRENSIQ [Suspect]
     Active Substance: ASFOTASE ALFA
     Dosage: 80 MG, TIW
     Route: 065
     Dates: start: 20230129
  3. STRENSIQ [Suspect]
     Active Substance: ASFOTASE ALFA
     Dosage: 40 MG, QW
     Route: 065
  4. MAGNESIUM [Concomitant]
     Active Substance: MAGNESIUM
     Indication: Product used for unknown indication
     Dosage: UNK
     Route: 065
  5. VITAMINS [Concomitant]
     Active Substance: VITAMINS
     Indication: Product used for unknown indication
     Dosage: UNK
     Route: 065

REACTIONS (21)
  - Muscle spasms [Unknown]
  - Dehydration [Unknown]
  - Insomnia [Unknown]
  - Pain [Unknown]
  - Injection site discomfort [Unknown]
  - Oropharyngeal pain [Unknown]
  - Nerve compression [Unknown]
  - Tooth fracture [Unknown]
  - Arthralgia [Unknown]
  - Fatigue [Unknown]
  - Bursitis [Unknown]
  - Intervertebral disc protrusion [Recovering/Resolving]
  - Back pain [Recovering/Resolving]
  - Injection site pain [Unknown]
  - Injection site mass [Unknown]
  - Injection site bruising [Not Recovered/Not Resolved]
  - Injection site erythema [Unknown]
  - Injection site pruritus [Unknown]
  - Injection site haemorrhage [Unknown]
  - Injection site reaction [Unknown]
  - Drug ineffective [Unknown]

NARRATIVE: CASE EVENT DATE: 20220618
